FAERS Safety Report 7463329-9 (Version None)
Quarter: 2011Q2

REPORT INFORMATION
  Report Type: 
  Country: None (occurrence: None)
  Receive Date: 20110506
  Receipt Date: 20110504
  Transmission Date: 20111010
  Serious: Yes (Hospitalization)
  Sender: FDA-Public Use
  Company Number: US-ABBOTT-11P-163-0698551-00

PATIENT
  Age: 75 Year
  Sex: Male
  Weight: 115.77 kg

DRUGS (7)
  1. HYTRIN [Suspect]
     Route: 048
     Dates: start: 20080424, end: 20101205
  2. CELECOXIB [Suspect]
     Indication: RHEUMATOID ARTHRITIS
  3. HYTRIN [Suspect]
     Indication: HYPERTENSION
     Route: 048
     Dates: start: 20050101, end: 20080424
  4. VERAPAMIL [Suspect]
     Indication: PRODUCT USED FOR UNKNOWN INDICATION
     Dates: start: 20060101, end: 20080425
  5. NEXIUM [Concomitant]
     Indication: PRODUCT USED FOR UNKNOWN INDICATION
     Dates: start: 20071031
  6. VERAPAMIL [Suspect]
     Route: 048
     Dates: start: 20080425, end: 20081205
  7. CELECOXIB [Suspect]
     Indication: OSTEOARTHRITIS
     Dosage: BLINDED
     Dates: start: 20071031

REACTIONS (2)
  - DYSARTHRIA [None]
  - ORTHOSTATIC HYPOTENSION [None]
